FAERS Safety Report 7329669-9 (Version None)
Quarter: 2011Q1

REPORT INFORMATION
  Report Type: 
  Country: None (occurrence: None)
  Receive Date: 20110303
  Receipt Date: 20110228
  Transmission Date: 20110831
  Serious: Yes (Other)
  Sender: FDA-Public Use
  Company Number: BR-ABBOTT-11P-020-0708183-00

PATIENT
  Sex: Female
  Weight: 40 kg

DRUGS (8)
  1. MESALAZINE [Concomitant]
     Indication: CROHN'S DISEASE
     Route: 048
  2. RANITIDINE [Concomitant]
     Indication: GASTRIC DISORDER
     Route: 048
  3. HUMIRA [Suspect]
     Route: 058
     Dates: end: 20101001
  4. AZATHIOPRINE SODIUM [Concomitant]
     Indication: CROHN'S DISEASE
     Route: 048
  5. HUMIRA [Suspect]
     Dosage: 80 MG LOADING DOSE
     Route: 058
  6. FOLIC ACID [Concomitant]
     Indication: ANAEMIA
     Route: 048
  7. HUMIRA [Suspect]
     Indication: CROHN'S DISEASE
     Dosage: 160 MG LOADING DOSE
     Route: 058
     Dates: start: 20100601, end: 20100601
  8. CIPRO [Concomitant]
     Indication: CROHN'S DISEASE
     Route: 048

REACTIONS (6)
  - LARGE INTESTINAL OBSTRUCTION [None]
  - CONSTIPATION [None]
  - DRUG INEFFECTIVE [None]
  - INTESTINAL STENOSIS [None]
  - ASTHENIA [None]
  - PAIN [None]
